FAERS Safety Report 18507108 (Version 3)
Quarter: 2020Q4

REPORT INFORMATION
  Report Type: Spontaneous
  Country: US (occurrence: US)
  Receive Date: 20201116
  Receipt Date: 20201204
  Transmission Date: 20210114
  Serious: No
  Sender: FDA-Public Use
  Company Number: US-PFIZER INC-2020447736

PATIENT
  Age: 48 Year
  Sex: Female
  Weight: 90.7 kg

DRUGS (4)
  1. BABY ASPIRIN [Concomitant]
     Active Substance: ASPIRIN
     Dosage: 81 MG, DAILY
  2. SOMAVERT [Suspect]
     Active Substance: PEGVISOMANT
     Indication: ACROMEGALY
     Dosage: 20 MG, ALTERNATE DAY (EVERY OTHER DAY)
     Route: 058
     Dates: start: 20201026
  3. AMLODIPINE [Concomitant]
     Active Substance: AMLODIPINE BESYLATE
     Indication: HYPERTENSION
     Dosage: 5 MG, DAILY
  4. SOMAVERT [Suspect]
     Active Substance: PEGVISOMANT
     Dosage: 20 MG, ALTERNATE DAY (EVERY OTHER DAY)
     Route: 058

REACTIONS (12)
  - Arthralgia [Unknown]
  - Constipation [Unknown]
  - Product use issue [Unknown]
  - Pruritus [Unknown]
  - Urticaria [Recovered/Resolved]
  - Fatigue [Unknown]
  - Pre-existing condition improved [Unknown]
  - Injection site pain [Unknown]
  - Therapeutic response unexpected [Unknown]
  - Off label use [Unknown]
  - Decreased appetite [Unknown]
  - Skin irritation [Unknown]

NARRATIVE: CASE EVENT DATE: 2020
